FAERS Safety Report 8289427-8 (Version None)
Quarter: 2012Q2

REPORT INFORMATION
  Report Type: 
  Country: None (occurrence: None)
  Receive Date: 20120417
  Receipt Date: 20120416
  Transmission Date: 20120825
  Serious: Yes (Death, Other)
  Sender: FDA-Public Use
  Company Number: JP-BRACCO-005846

PATIENT
  Age: 74 Year
  Sex: Male

DRUGS (1)
  1. IOPAMIDOL [Suspect]
     Indication: COMPUTERISED TOMOGRAM ABDOMEN
     Route: 042
     Dates: start: 20120413, end: 20120413

REACTIONS (3)
  - LARYNGEAL OEDEMA [None]
  - DEATH [None]
  - BLOOD PRESSURE DECREASED [None]
